FAERS Safety Report 8420155-1 (Version None)
Quarter: 2012Q2

REPORT INFORMATION
  Report Type: 
  Country: None (occurrence: None)
  Receive Date: 20120607
  Receipt Date: 20100310
  Transmission Date: 20120825
  Serious: Yes (Other)
  Sender: FDA-Public Use
  Company Number: JP-BRISTOL-MYERS SQUIBB COMPANY-16526428

PATIENT
  Sex: Female

DRUGS (1)
  1. ABILIFY [Suspect]
     Dosage: INCREASED TO 9MG; FOR 6MONTHS
     Route: 065

REACTIONS (3)
  - HALLUCINATION [None]
  - DELUSION [None]
  - DRUG INEFFECTIVE [None]
